FAERS Safety Report 17725564 (Version 1)
Quarter: 2020Q2

REPORT INFORMATION
  Report Type: Report from Study
  Country: FR (occurrence: FR)
  Receive Date: 20200429
  Receipt Date: 20200429
  Transmission Date: 20200714
  Serious: Yes (Other)
  Sender: FDA-Public Use
  Company Number: FR-MYLANLABS-2020M1041887

PATIENT
  Age: 57 Year
  Sex: Female

DRUGS (10)
  1. CALCIUM FOLINATE [Suspect]
     Active Substance: LEUCOVORIN CALCIUM
     Indication: COLORECTAL CANCER METASTATIC
     Dosage: UNK, QCY
     Route: 042
     Dates: start: 20141204, end: 20141204
  2. FLUOROURACIL. [Suspect]
     Active Substance: FLUOROURACIL
     Dosage: 532 MG, QCY
     Route: 042
     Dates: start: 20150707, end: 20150707
  3. AFLIBERCEPT [Suspect]
     Active Substance: AFLIBERCEPT
     Dosage: 228 MG, QCY
     Route: 042
     Dates: start: 20150707, end: 20150707
  4. FLUOROURACIL. [Suspect]
     Active Substance: FLUOROURACIL
     Indication: COLORECTAL CANCER METASTATIC
     Dosage: UNK UNK, QCY
     Route: 042
     Dates: start: 20141204, end: 20141204
  5. FLUOROURACIL. [Suspect]
     Active Substance: FLUOROURACIL
     Dosage: 3197 MG, QCY
     Route: 040
     Dates: start: 20150707, end: 20150707
  6. IRINOTECAN [Suspect]
     Active Substance: IRINOTECAN
     Indication: COLORECTAL CANCER METASTATIC
     Dosage: UNK UNK, QCY
     Route: 042
     Dates: start: 20141204, end: 20141204
  7. IRINOTECAN [Suspect]
     Active Substance: IRINOTECAN
     Dosage: 299 MG, QCY
     Route: 042
     Dates: start: 20150707, end: 20150707
  8. AFLIBERCEPT [Suspect]
     Active Substance: AFLIBERCEPT
     Indication: COLORECTAL CANCER METASTATIC
     Dosage: UNK UNK, QCY
     Route: 042
     Dates: start: 20141204, end: 20141204
  9. CALCIUM FOLINATE [Suspect]
     Active Substance: LEUCOVORIN CALCIUM
     Dosage: 333 MG, QCY
     Route: 042
     Dates: start: 20150707, end: 20150707
  10. FLUOROURACIL. [Suspect]
     Active Substance: FLUOROURACIL
     Dosage: UNK UNK, QCY
     Route: 040
     Dates: start: 20141204, end: 20141204

REACTIONS (1)
  - Hypertension [Recovered/Resolved]

NARRATIVE: CASE EVENT DATE: 20150721
